FAERS Safety Report 21616523 (Version 6)
Quarter: 2023Q1

REPORT INFORMATION
  Report Type: Report from Study
  Country: US (occurrence: US)
  Receive Date: 20221118
  Receipt Date: 20230331
  Transmission Date: 20230418
  Serious: No
  Sender: FDA-Public Use
  Company Number: US-002147023-NVSC2022US259952

PATIENT
  Age: 69 Year
  Sex: Male

DRUGS (1)
  1. ENTRESTO [Suspect]
     Active Substance: SACUBITRIL\VALSARTAN
     Indication: Product used for unknown indication
     Dosage: 50 MG, BID (24/26 MG)
     Route: 048
     Dates: start: 202208

REACTIONS (7)
  - Weight increased [Recovering/Resolving]
  - Memory impairment [Unknown]
  - Brain natriuretic peptide increased [Recovered/Resolved]
  - Back pain [Unknown]
  - Tooth infection [Unknown]
  - Osteoporosis [Recovering/Resolving]
  - Toothache [Unknown]

NARRATIVE: CASE EVENT DATE: 20221201
